FAERS Safety Report 21718654 (Version 1)
Quarter: 2022Q4

REPORT INFORMATION
  Report Type: Spontaneous
  Country: JP (occurrence: JP)
  Receive Date: 20221213
  Receipt Date: 20221213
  Transmission Date: 20230113
  Serious: Yes (Other)
  Sender: FDA-Public Use
  Company Number: JP-CHUGAI-2022048890

PATIENT
  Age: 62 Year
  Sex: Female

DRUGS (1)
  1. AVASTIN [Suspect]
     Active Substance: BEVACIZUMAB
     Indication: Metastases to peritoneum
     Dosage: UNK, ONCE/3WEEKS
     Route: 041

REACTIONS (1)
  - Tendon sheath incision [Unknown]
